FAERS Safety Report 5669153-1 (Version None)
Quarter: 2008Q1

REPORT INFORMATION
  Report Type: 
  Country: None (occurrence: None)
  Receive Date: 20080311
  Receipt Date: 20080311
  Transmission Date: 20080703
  Serious: Yes (Other)
  Sender: FDA-Public Use
  Company Number: None

PATIENT
  Age: 69 Year
  Sex: Female
  Weight: 83.9154 kg

DRUGS (4)
  1. LOVASTATIN [Suspect]
     Indication: BLOOD CHOLESTEROL INCREASED
     Dosage: 5 MG DAY PO
     Route: 048
  2. CRESTOR [Suspect]
     Dosage: 5 MG DAY PO
     Route: 048
  3. GLUCOPHAGE [Concomitant]
  4. LEVITHYROXINE [Concomitant]

REACTIONS (2)
  - MUSCLE SPASMS [None]
  - MUSCULAR WEAKNESS [None]
